FAERS Safety Report 11754861 (Version 1)
Quarter: 2015Q4

REPORT INFORMATION
  Report Type: Report from Study
  Country: US (occurrence: US)
  Receive Date: 20151119
  Receipt Date: 20151119
  Transmission Date: 20160304
  Serious: Yes (Other)
  Sender: FDA-Public Use
  Company Number: US-GILEAD-2015-0182991

PATIENT
  Age: 77 Year
  Sex: Female

DRUGS (2)
  1. AMBRISENTAN [Suspect]
     Active Substance: AMBRISENTAN
     Indication: PRODUCT USED FOR UNKNOWN INDICATION
     Dosage: 5 MG, QD
     Route: 065
     Dates: start: 20140908
  2. WARFARIN [Concomitant]
     Active Substance: WARFARIN

REACTIONS (3)
  - Asthma [Not Recovered/Not Resolved]
  - Lung infection [Unknown]
  - Cough [Not Recovered/Not Resolved]
